FAERS Safety Report 4992766-7 (Version None)
Quarter: 2006Q2

REPORT INFORMATION
  Report Type: 
  Country: None (occurrence: None)
  Receive Date: 20060504
  Receipt Date: 20060428
  Transmission Date: 20061013
  Serious: Yes (Hospitalization)
  Sender: FDA-Public Use
  Company Number: US-ABBOTT-06P-163-0331976-00

PATIENT
  Sex: Female
  Weight: 54.48 kg

DRUGS (4)
  1. BIAXIN XL [Suspect]
     Indication: PNEUMONIA
     Route: 048
     Dates: start: 20060404, end: 20060425
  2. BIAXIN XL [Suspect]
     Indication: BRONCHITIS
  3. DIGOXIN [Interacting]
     Indication: CARDIAC DISORDER
     Route: 048
  4. MULTIPLE UNSPECIFIED MEDICATIONS [Concomitant]
     Indication: DRUG USE FOR UNKNOWN INDICATION

REACTIONS (6)
  - CHEST DISCOMFORT [None]
  - DRUG INTERACTION [None]
  - DYSGEUSIA [None]
  - GASTROOESOPHAGEAL REFLUX DISEASE [None]
  - MUSCLE SPASMS [None]
  - NAUSEA [None]
